FAERS Safety Report 10699828 (Version 1)
Quarter: 2015Q1

REPORT INFORMATION
  Report Type: Spontaneous
  Country: US (occurrence: None)
  Receive Date: 20150108
  Receipt Date: 20150108
  Transmission Date: 20150721
  Serious: Yes (Hospitalization)
  Sender: FDA-Public Use
  Company Number: None

PATIENT
  Age: 63 Year
  Sex: Male
  Weight: 95.3 kg

DRUGS (3)
  1. CELLCEPT [Suspect]
     Active Substance: MYCOPHENOLATE MOFETIL\MYCOPHENOLATE MOFETIL HYDROCHLORIDE
     Indication: RENAL TRANSPLANT
     Route: 048
     Dates: start: 20140802
  2. NULOJIX [Suspect]
     Active Substance: BELATACEPT
     Indication: RENAL TRANSPLANT
     Dosage: 475 MG, Q 4WKS, IV, THERAPY DATES 12/19/2014 (LAST DOSE)?
     Route: 042
     Dates: start: 20141219
  3. BELATACEPT INFUSION [Concomitant]

REACTIONS (10)
  - Aortic arteriosclerosis [None]
  - Complications of transplanted kidney [None]
  - Hydroureter [None]
  - Localised intraabdominal fluid collection [None]
  - Headache [None]
  - Leukopenia [None]
  - Road traffic accident [None]
  - Hydronephrosis [None]
  - Neck pain [None]
  - Abdominal pain [None]

NARRATIVE: CASE EVENT DATE: 20141231
